FAERS Safety Report 20760373 (Version 1)
Quarter: 2022Q2

REPORT INFORMATION
  Report Type: Spontaneous
  Country: US (occurrence: US)
  Receive Date: 20220428
  Receipt Date: 20220428
  Transmission Date: 20220721
  Serious: No
  Sender: FDA-Public Use
  Company Number: US-ENDO PHARMACEUTICALS INC-2022-000651

PATIENT
  Age: 56 Year
  Sex: Female

DRUGS (3)
  1. QWO [Suspect]
     Active Substance: COLLAGENASE CLOSTRIDIUM HISTOLYTICUM-AAES
     Indication: Cellulite
     Dosage: UNK UNKNOWN, UNKNOWN (TREATMENT ONE), 24 INJECTIONS
     Route: 065
     Dates: start: 20210904
  2. QWO [Suspect]
     Active Substance: COLLAGENASE CLOSTRIDIUM HISTOLYTICUM-AAES
     Dosage: UNK UNKNOWN, UNKNOWN (TREATMENT TWO), 24 INJECTIONS
     Route: 065
     Dates: start: 20211007
  3. QWO [Suspect]
     Active Substance: COLLAGENASE CLOSTRIDIUM HISTOLYTICUM-AAES
     Dosage: UNK UNKNOWN, UNKNOWN (TREATMENT THREE), 24 INJECTIONS
     Route: 065
     Dates: start: 20211026

REACTIONS (4)
  - Injection site indentation [Unknown]
  - Lipodystrophy acquired [Unknown]
  - Ecchymosis [Unknown]
  - Post inflammatory pigmentation change [Unknown]
